FAERS Safety Report 18210626 (Version 1)
Quarter: 2020Q3

REPORT INFORMATION
  Report Type: Spontaneous
  Country: US (occurrence: US)
  Receive Date: 20200829
  Receipt Date: 20200829
  Transmission Date: 20201103
  Serious: No
  Sender: FDA-Public Use
  Company Number: US-GILEAD-2020-0492426

PATIENT
  Age: 53 Year
  Sex: Female
  Weight: 35.4 kg

DRUGS (19)
  1. REMDESIVIR. [Suspect]
     Active Substance: REMDESIVIR
     Indication: COVID-19
     Dosage: 200 MG, ONCE
     Route: 042
     Dates: start: 20200818, end: 20200818
  2. SIMVASTATIN. [Concomitant]
     Active Substance: SIMVASTATIN
  3. DEXAMETHASONE SODIUM PHOSPHATE. [Concomitant]
     Active Substance: DEXAMETHASONE SODIUM PHOSPHATE
     Dosage: UNK
     Dates: start: 20200824
  4. ASPIRIN. [Concomitant]
     Active Substance: ASPIRIN
  5. VALSARTAN. [Concomitant]
     Active Substance: VALSARTAN
  6. OLANZAPINE. [Concomitant]
     Active Substance: OLANZAPINE
  7. INSULIN GLARGINE [Concomitant]
     Active Substance: INSULIN GLARGINE
  8. SPIRONOLACTONE. [Concomitant]
     Active Substance: SPIRONOLACTONE
  9. KETOROLAC [Concomitant]
     Active Substance: KETOROLAC TROMETHAMINE
  10. ATORVASTATIN [Concomitant]
     Active Substance: ATORVASTATIN
  11. REMDESIVIR. [Suspect]
     Active Substance: REMDESIVIR
     Dosage: 100 MG, QD
     Route: 042
     Dates: start: 20200818, end: 20200821
  12. METOPROLOL SUCCINATE. [Concomitant]
     Active Substance: METOPROLOL SUCCINATE
  13. POLYETHYLENE GLYCOL [Concomitant]
     Active Substance: POLYETHYLENE GLYCOLS
  14. GABAPENTIN. [Concomitant]
     Active Substance: GABAPENTIN
  15. GUAIFENESIN DEXTROMETHORPHAN [Concomitant]
  16. ALBUTEROL HFA [Concomitant]
     Active Substance: ALBUTEROL SULFATE
  17. BENZONATATE. [Concomitant]
     Active Substance: BENZONATATE
  18. FUROSEMIDE. [Concomitant]
     Active Substance: FUROSEMIDE
  19. ONDANSETRON [Concomitant]
     Active Substance: ONDANSETRON

REACTIONS (1)
  - Extra dose administered [Unknown]

NARRATIVE: CASE EVENT DATE: 20200818
